FAERS Safety Report 24417747 (Version 1)
Quarter: 2024Q4

REPORT INFORMATION
  Report Type: Report from Study
  Country: US (occurrence: US)
  Receive Date: 20241009
  Receipt Date: 20241009
  Transmission Date: 20250114
  Serious: Yes (Hospitalization, Other)
  Sender: ABBVIE
  Company Number: US-ABBVIE-5952266

PATIENT
  Age: 31 Year
  Sex: Female

DRUGS (1)
  1. SKYRIZI [Suspect]
     Active Substance: RISANKIZUMAB-RZAA
     Indication: Crohn^s disease
     Dosage: LAST ADMIN DATE: MAY 2023
     Route: 042
     Dates: start: 20230501

REACTIONS (7)
  - Dehydration [Unknown]
  - Vomiting [Unknown]
  - Device related sepsis [Recovered/Resolved]
  - Malabsorption [Unknown]
  - Blood magnesium decreased [Unknown]
  - Small intestinal obstruction [Unknown]
  - Weight decreased [Unknown]

NARRATIVE: CASE EVENT DATE: 20230501
